FAERS Safety Report 14838603 (Version 1)
Quarter: 2018Q2

REPORT INFORMATION
  Report Type: Spontaneous
  Country: US (occurrence: US)
  Receive Date: 20180502
  Receipt Date: 20180502
  Transmission Date: 20180711
  Serious: No
  Sender: FDA-Public Use
  Company Number: US-PFIZER INC-2018175381

PATIENT
  Age: 52 Year
  Sex: Male

DRUGS (1)
  1. GEMCITABINE HYDROCHLORIDE. [Suspect]
     Active Substance: GEMCITABINE HYDROCHLORIDE
     Dosage: UNK

REACTIONS (4)
  - Brain natriuretic peptide increased [Unknown]
  - Troponin increased [Unknown]
  - Dyspnoea exertional [Unknown]
  - Coronary artery disease [Unknown]
